FAERS Safety Report 12507369 (Version 2)
Quarter: 2016Q3

REPORT INFORMATION
  Report Type: Spontaneous
  Country: MY (occurrence: MY)
  Receive Date: 20160629
  Receipt Date: 20160714
  Transmission Date: 20161109
  Serious: Yes (Other)
  Sender: FDA-Public Use
  Company Number: MY-ACCORD-041489

PATIENT
  Age: 32 Year
  Sex: Male
  Weight: 46 kg

DRUGS (1)
  1. FINAPECIA INTAS [Suspect]
     Active Substance: FINASTERIDE
     Indication: ALOPECIA
     Dosage: STRENGTH: 1 MG

REACTIONS (4)
  - Gait disturbance [Not Recovered/Not Resolved]
  - Pruritus [Recovered/Resolved]
  - Oedema peripheral [Not Recovered/Not Resolved]
  - Discomfort [Not Recovered/Not Resolved]
